FAERS Safety Report 4638505-0 (Version None)
Quarter: 2005Q2

REPORT INFORMATION
  Report Type: 
  Country: None (occurrence: None)
  Receive Date: 20050418
  Receipt Date: 20050330
  Transmission Date: 20051028
  Serious: Yes (Other)
  Sender: FDA-Public Use
  Company Number: 2005058105

PATIENT
  Age: 50 Year
  Sex: Male
  Weight: 80 kg

DRUGS (1)
  1. VIAGRA [Suspect]
     Indication: ERECTILE DYSFUNCTION
     Dosage: 50 MG( 50 MG, UNKNOWN), ORAL
     Route: 048
     Dates: start: 20030101

REACTIONS (3)
  - FLUSHING [None]
  - HEADACHE [None]
  - PEYRONIE'S DISEASE [None]
